FAERS Safety Report 9844083 (Version 1)
Quarter: 2014Q1

REPORT INFORMATION
  Report Type: Spontaneous
  Country: FR (occurrence: FR)
  Receive Date: 20140127
  Receipt Date: 20140127
  Transmission Date: 20141002
  Serious: Yes (Hospitalization)
  Sender: FDA-Public Use
  Company Number: FR-ROCHE-1337425

PATIENT
  Age: 34 Year
  Sex: Male

DRUGS (3)
  1. RIVOTRIL [Suspect]
     Indication: BACK PAIN
     Route: 048
     Dates: start: 201311
  2. MONOCRIXO [Suspect]
     Indication: BACK PAIN
     Route: 048
     Dates: end: 20131103
  3. MONOCRIXO [Suspect]
     Route: 048
     Dates: start: 20131104

REACTIONS (2)
  - Somnolence [Recovered/Resolved]
  - Miosis [Recovered/Resolved]
